FAERS Safety Report 9493860 (Version 4)
Quarter: 2014Q1

REPORT INFORMATION
  Report Type: Spontaneous
  Country: JP (occurrence: JP)
  Receive Date: 20130902
  Receipt Date: 20140304
  Transmission Date: 20141002
  Serious: Yes (Death)
  Sender: FDA-Public Use
  Company Number: PHHY2010JP64484

PATIENT
  Age: 62 Year
  Sex: Female

DRUGS (6)
  1. EXJADE [Suspect]
     Indication: MYELOFIBROSIS
     Dosage: 500 MG, DAILY
     Route: 048
     Dates: start: 20081008, end: 20120227
  2. BLOOD TRANSFUSION, AUXILIARY PRODUCTS [Concomitant]
     Dosage: UNK UKN, UNK
  3. METHYCOBAL [Concomitant]
     Indication: PROPHYLAXIS
     Dosage: 1500 UG, UNK
     Route: 048
     Dates: start: 20111009, end: 20120227
  4. BIOFERMIN R [Concomitant]
     Dosage: 3 G, UNK
     Route: 048
     Dates: start: 20111009, end: 20120227
  5. HYDREA [Concomitant]
     Dosage: 500 MG, UNK
     Route: 048
     Dates: start: 20111009, end: 20120227
  6. RED CELLS CONCENTRATES-LEUKOCYTES REDUCED [Concomitant]
     Dosage: 2 U, EVERY 4 WEEKS
     Dates: start: 20111009, end: 20120227

REACTIONS (3)
  - Myelofibrosis [Fatal]
  - Condition aggravated [Fatal]
  - Blood creatinine abnormal [Recovered/Resolved]
